FAERS Safety Report 8168770-7 (Version None)
Quarter: 2012Q1

REPORT INFORMATION
  Report Type: 
  Country: None (occurrence: None)
  Receive Date: 20120227
  Receipt Date: 20120215
  Transmission Date: 20120608
  Serious: Yes (Other)
  Sender: FDA-Public Use
  Company Number: DE-FRI-1000028650

PATIENT
  Age: 75 Year
  Sex: Female

DRUGS (3)
  1. TIAPRIDEX [Suspect]
     Indication: MENTAL DISORDER
     Dates: start: 20120214
  2. FOSFOMYCIN [Suspect]
     Indication: URINARY TRACT INFECTION
     Route: 048
     Dates: start: 20120214, end: 20120214
  3. VALPROATE SODIUM [Suspect]
     Indication: MENTAL DISORDER
     Dates: start: 20120214

REACTIONS (1)
  - ARRHYTHMIA [None]
